FAERS Safety Report 17963364 (Version 2)
Quarter: 2020Q3

REPORT INFORMATION
  Report Type: Spontaneous
  Country: NL (occurrence: NL)
  Receive Date: 20200630
  Receipt Date: 20200703
  Transmission Date: 20201103
  Serious: Yes (Other)
  Sender: FDA-Public Use
  Company Number: NL-TEVA-2020-NL-1792068

PATIENT
  Sex: Male
  Weight: 71 kg

DRUGS (1)
  1. OLANZAPINE TEVA [Suspect]
     Active Substance: OLANZAPINE
     Indication: PSYCHOTIC DISORDER
     Dosage: 1 DOSAGE FORM, THERAPY END DATE: ASKED BUT UNKNOWN
     Dates: start: 20200316

REACTIONS (2)
  - Therapeutic response unexpected [Unknown]
  - Intracranial pressure increased [Not Recovered/Not Resolved]
